FAERS Safety Report 14937842 (Version 1)
Quarter: 2018Q2

REPORT INFORMATION
  Report Type: Spontaneous
  Country: FR (occurrence: FR)
  Receive Date: 20180525
  Receipt Date: 20180525
  Transmission Date: 20180711
  Serious: Yes (Other)
  Sender: FDA-Public Use
  Company Number: FR-MERCK KGAA-2048457

PATIENT
  Age: 63 Year
  Sex: Male

DRUGS (1)
  1. NOVOTHYROX [Suspect]
     Active Substance: LEVOTHYROXINE SODIUM
     Indication: PRODUCT USED FOR UNKNOWN INDICATION
     Dates: start: 2017, end: 201709

REACTIONS (25)
  - Fatigue [None]
  - Myalgia [None]
  - Disorientation [None]
  - Joint range of motion decreased [None]
  - Diplegia [None]
  - Amnesia [None]
  - Marital problem [None]
  - Chills [None]
  - Abdominal distension [None]
  - Depression [None]
  - Feeling abnormal [None]
  - Irritability [None]
  - Gamma-glutamyltransferase increased [None]
  - Psoriasis [None]
  - Decreased activity [None]
  - Mood swings [None]
  - Flushing [None]
  - Dyspepsia [None]
  - Dizziness [None]
  - Dyspnoea [None]
  - Apathy [None]
  - Loss of personal independence in daily activities [None]
  - Aggression [None]
  - Somnolence [None]
  - Personal relationship issue [None]

NARRATIVE: CASE EVENT DATE: 20170822
